FAERS Safety Report 9318499 (Version 1)
Quarter: 2013Q2

REPORT INFORMATION
  Report Type: Spontaneous
  Country: US (occurrence: US)
  Receive Date: 20130530
  Receipt Date: 20130530
  Transmission Date: 20140414
  Serious: No
  Sender: FDA-Public Use
  Company Number: US-NOVEN-12US005578

PATIENT
  Sex: Female
  Weight: 34.01 kg

DRUGS (1)
  1. DAYTRANA [Suspect]
     Indication: PRODUCT USED FOR UNKNOWN INDICATION
     Dosage: 30 MG, QD
     Route: 062
     Dates: start: 200808, end: 201109

REACTIONS (1)
  - Application site discolouration [Not Recovered/Not Resolved]
